FAERS Safety Report 7627670-9 (Version None)
Quarter: 2011Q3

REPORT INFORMATION
  Report Type: 
  Country: None (occurrence: None)
  Receive Date: 20110721
  Receipt Date: 20110621
  Transmission Date: 20111222
  Serious: Yes (Hospitalization)
  Sender: FDA-Public Use
  Company Number: IT-BAYER-2011-053526

PATIENT
  Age: 71 Year
  Sex: Male

DRUGS (5)
  1. ASPIRIN [Suspect]
     Indication: PLATELET AGGREGATION INHIBITION
     Dosage: 100 MG, QD
     Route: 048
     Dates: start: 20090601, end: 20110612
  2. KETOPROFEN [Suspect]
     Indication: MIGRAINE
     Dosage: 80 MG, QD
     Route: 048
     Dates: start: 20110610, end: 20110612
  3. SIMVASTATIN [Concomitant]
     Indication: HYPERCHOLESTEROLAEMIA
     Dosage: DAILY DOSE 20 MG
     Route: 048
     Dates: start: 20080601, end: 20110612
  4. OLMESARTAN MEDOXOMIL [Concomitant]
     Indication: HYPERTENSION
     Dosage: DAILY DOSE 10 MG
     Route: 048
     Dates: start: 20080601, end: 20110612
  5. OMEPRAZOLE [Concomitant]
     Dosage: DAILY DOSE 20 MG
     Route: 048
     Dates: start: 20090601, end: 20110612

REACTIONS (2)
  - HAEMATEMESIS [None]
  - EROSIVE DUODENITIS [None]
